FAERS Safety Report 8113106 (Version 3)
Quarter: 2013Q3

REPORT INFORMATION
  Report Type: Spontaneous
  Country: US (occurrence: US)
  Receive Date: 20110830
  Receipt Date: 20130803
  Transmission Date: 20140515
  Serious: Yes (Hospitalization)
  Sender: FDA-Public Use
  Company Number: US-B.I. PHARMACEUTICALS,INC./RIDGEFIELD-2011-BP-20103BP

PATIENT
  Age: 69 Year
  Sex: Female

DRUGS (9)
  1. PRADAXA [Suspect]
     Indication: TRANSIENT ISCHAEMIC ATTACK
     Dosage: 300 MG
     Route: 048
     Dates: start: 201010
  2. PRADAXA [Suspect]
     Indication: ATRIAL FIBRILLATION
  3. NORTRIPTYLINE [Concomitant]
     Indication: TRANSIENT ISCHAEMIC ATTACK
  4. DIGOXIN [Concomitant]
     Indication: CARDIAC DISORDER
  5. METOPROLOL [Concomitant]
     Indication: CARDIAC DISORDER
  6. LEXAPRO [Concomitant]
     Indication: DEPRESSION
  7. ZOLPIDEM [Concomitant]
     Indication: INSOMNIA
  8. MULTAQ [Concomitant]
     Indication: ATRIAL FIBRILLATION
     Dosage: 800 MG
     Route: 048
  9. LEVOTHYROXINE [Concomitant]
     Indication: HYPOTHYROIDISM
     Dosage: 75 MCG
     Route: 048

REACTIONS (6)
  - Atrial fibrillation [Recovered/Resolved]
  - Rash [Not Recovered/Not Resolved]
  - Dry skin [Not Recovered/Not Resolved]
  - Weight increased [Not Recovered/Not Resolved]
  - Injury [Not Recovered/Not Resolved]
  - Contusion [Not Recovered/Not Resolved]
